FAERS Safety Report 4866900-3 (Version None)
Quarter: 2005Q4

REPORT INFORMATION
  Report Type: 
  Country: None (occurrence: None)
  Receive Date: 20051222
  Receipt Date: 20051209
  Transmission Date: 20060501
  Serious: Yes (Other)
  Sender: FDA-Public Use
  Company Number: 13099

PATIENT
  Sex: Male

DRUGS (1)
  1. METHOTREXATE [Suspect]
     Indication: LEUKAEMIA
     Dosage: 12.5 MG PER_CYCLE IT

REACTIONS (4)
  - CEREBROVASCULAR ACCIDENT [None]
  - DYSPHASIA [None]
  - FACIAL PALSY [None]
  - HEMIPARESIS [None]
